FAERS Safety Report 12653586 (Version 2)
Quarter: 2016Q3

REPORT INFORMATION
  Report Type: Spontaneous
  Country: FR (occurrence: FR)
  Receive Date: 20160815
  Receipt Date: 20160817
  Transmission Date: 20161109
  Serious: Yes (Other)
  Sender: FDA-Public Use
  Company Number: FR-ALLERGAN-1665118US

PATIENT
  Age: 8 Month
  Sex: Female

DRUGS (1)
  1. ULCAR [Suspect]
     Active Substance: SUCRALFATE
     Indication: MOUTH ULCERATION
     Dosage: 1 TSP 1/2 HOUR BEFORE MEAL
     Dates: start: 20160725, end: 20160728

REACTIONS (6)
  - Body temperature decreased [Not Recovered/Not Resolved]
  - Dyspnoea [Not Recovered/Not Resolved]
  - Rash [Not Recovered/Not Resolved]
  - Decreased appetite [Not Recovered/Not Resolved]
  - Off label use [Unknown]
  - Urticaria [Not Recovered/Not Resolved]

NARRATIVE: CASE EVENT DATE: 20160728
